FAERS Safety Report 5607521-4 (Version None)
Quarter: 2008Q1

REPORT INFORMATION
  Report Type: 
  Country: None (occurrence: None)
  Receive Date: 20080130
  Receipt Date: 20080122
  Transmission Date: 20080703
  Serious: Yes (Hospitalization, Other)
  Sender: FDA-Public Use
  Company Number: PHBS2008BR01172

PATIENT
  Age: 83 Year
  Sex: Male
  Weight: 56 kg

DRUGS (6)
  1. PARLODEL [Suspect]
     Indication: PARKINSON'S DISEASE
     Dosage: 1.25 MG, BID
     Route: 048
  2. PROLOPA [Concomitant]
     Indication: PARKINSON'S DISEASE
     Dosage: UNK, BID
     Route: 048
  3. NIAR [Concomitant]
     Indication: PARKINSON'S DISEASE
     Dosage: 2.5 MG, BID
     Route: 048
  4. CAPTOPRIL [Concomitant]
     Indication: CARDIAC DISORDER
     Dosage: 25 MG, BID
     Route: 048
  5. ASPIRIN [Concomitant]
     Indication: CARDIAC DISORDER
     Dosage: UNK, QD
  6. ARTANE [Concomitant]
     Indication: PARKINSON'S DISEASE
     Route: 048
     Dates: end: 20070701

REACTIONS (7)
  - CONSTIPATION [None]
  - DIZZINESS [None]
  - FALL [None]
  - GASTROINTESTINAL TUBE INSERTION [None]
  - HAEMORRHAGE [None]
  - SOMNOLENCE [None]
  - SURGERY [None]
